FAERS Safety Report 6400197-8 (Version None)
Quarter: 2009Q4

REPORT INFORMATION
  Report Type: 
  Country: None (occurrence: None)
  Receive Date: 20091014
  Receipt Date: 20091002
  Transmission Date: 20100525
  Serious: Yes (Other)
  Sender: FDA-Public Use
  Company Number: JP-PFIZER INC-2009282952

PATIENT
  Age: 74 Year

DRUGS (1)
  1. GENOTROPIN [Suspect]
     Dosage: 0.1 MG, DAILY
     Route: 058

REACTIONS (1)
  - ASTHMA [None]
